FAERS Safety Report 8734156 (Version 2)
Quarter: 2013Q1

REPORT INFORMATION
  Report Type: Spontaneous
  Country: US (occurrence: US)
  Receive Date: 20120821
  Receipt Date: 20130104
  Transmission Date: 20140127
  Serious: Yes (Hospitalization)
  Sender: FDA-Public Use
  Company Number: US-BAYER-2012-085551

PATIENT
  Age: 31 Year
  Sex: Female

DRUGS (4)
  1. YAZ [Suspect]
     Indication: ACNE
  2. YASMIN [Suspect]
     Indication: ACNE
  3. VITAMIN C [Concomitant]
     Dosage: UNK
  4. NSAID^S [Concomitant]
     Dosage: VARIOUS, PRN

REACTIONS (11)
  - Cholecystectomy [None]
  - Cholelithiasis [None]
  - Injury [None]
  - Scar [None]
  - Abdominal distension [None]
  - Flatulence [None]
  - Dyspepsia [None]
  - Constipation [None]
  - Diarrhoea [None]
  - Anxiety [None]
  - Depression [None]
